FAERS Safety Report 4890671-8 (Version None)
Quarter: 2006Q1

REPORT INFORMATION
  Report Type: 
  Country: None (occurrence: None)
  Receive Date: 20060123
  Receipt Date: 20060109
  Transmission Date: 20060701
  Serious: Yes (Hospitalization)
  Sender: FDA-Public Use
  Company Number: 2006000081

PATIENT
  Age: 59 Year
  Sex: Female

DRUGS (8)
  1. TARCEVA [Suspect]
     Indication: NON-SMALL CELL LUNG CANCER
     Dosage: 150 MG (QD), ORAL
     Route: 048
     Dates: start: 20050901, end: 20051220
  2. ASPIRIN [Concomitant]
  3. PROCARDIA [Concomitant]
  4. CLONIDINE [Concomitant]
  5. METOPROLOL (METOPROLOL) [Concomitant]
  6. LIPITOR [Concomitant]
  7. PREVACID [Concomitant]
  8. FLONEX [Concomitant]

REACTIONS (7)
  - ACUTE RESPIRATORY DISTRESS SYNDROME [None]
  - DISSEMINATED INTRAVASCULAR COAGULATION [None]
  - HEPATIC FAILURE [None]
  - HYPOTENSION [None]
  - INTESTINAL ISCHAEMIA [None]
  - RENAL FAILURE [None]
  - SEPSIS [None]
